FAERS Safety Report 5655553-2 (Version None)
Quarter: 2008Q1

REPORT INFORMATION
  Report Type: 
  Country: None (occurrence: None)
  Receive Date: 20080219
  Receipt Date: 20080109
  Transmission Date: 20080703
  Serious: No
  Sender: FDA-Public Use
  Company Number: WAES 0801USA01830

PATIENT
  Age: 46 Year
  Sex: Female
  Weight: 73.0291 kg

DRUGS (7)
  1. JANUVIA [Suspect]
     Indication: DIABETES MELLITUS
     Dosage: 50 MG/DAILY/PO; 100 MG/DAILY/PO
     Route: 048
     Dates: end: 20080108
  2. JANUVIA [Suspect]
     Indication: DIABETES MELLITUS
     Dosage: 50 MG/DAILY/PO; 100 MG/DAILY/PO
     Route: 048
     Dates: start: 20070828
  3. AVANDIA [Concomitant]
  4. ASPIRIN [Concomitant]
  5. HERBS (UNSPECIFIED) [Concomitant]
  6. LISINOPRIL [Concomitant]
  7. METFORMIN HCL [Concomitant]

REACTIONS (2)
  - ALANINE AMINOTRANSFERASE INCREASED [None]
  - ASPARTATE AMINOTRANSFERASE INCREASED [None]
